FAERS Safety Report 19542789 (Version 1)
Quarter: 2021Q3

REPORT INFORMATION
  Report Type: Other
  Country: CA (occurrence: CA)
  Receive Date: 20210713
  Receipt Date: 20210713
  Transmission Date: 20211014
  Serious: Yes (Hospitalization)
  Sender: FDA-Public Use
  Company Number: CA-PFIZER INC-2021805644

PATIENT
  Age: 6 Day
  Sex: Male
  Weight: 3 kg

DRUGS (3)
  1. HEPARIN SODIUM. [Suspect]
     Active Substance: HEPARIN SODIUM
     Indication: COAGULATION TIME SHORTENED
     Dosage: UNK
     Route: 042
  2. ALTEPLASE. [Concomitant]
     Active Substance: ALTEPLASE
  3. DEXTROSE AND SODIUM CHLORIDE INJECTION [Concomitant]
     Active Substance: DEXTROSE\SODIUM CHLORIDE

REACTIONS (13)
  - Condition aggravated [Unknown]
  - Mental impairment [Unknown]
  - Thrombosis [Unknown]
  - Haemodynamic instability [Unknown]
  - Peripheral coldness [Unknown]
  - Cyanosis neonatal [Unknown]
  - Pallor [Unknown]
  - Neonatal anuria [Unknown]
  - Haemorrhage neonatal [Unknown]
  - Acidosis [Unknown]
  - Haemoglobin decreased [Unknown]
  - Neonatal respiratory distress [Unknown]
  - Drug ineffective [Unknown]
